FAERS Safety Report 21643701 (Version 1)
Quarter: 2022Q4

REPORT INFORMATION
  Report Type: Spontaneous
  Country: CZ (occurrence: CZ)
  Receive Date: 20221125
  Receipt Date: 20221125
  Transmission Date: 20230113
  Serious: Yes (Hospitalization, Other)
  Sender: FDA-Public Use
  Company Number: CZ-PFIZER INC-PV202200107760

PATIENT
  Sex: Female

DRUGS (6)
  1. METHYLPREDNISOLONE [Suspect]
     Active Substance: METHYLPREDNISOLONE
     Indication: Dermatitis atopic
  2. METHYLPREDNISOLONE [Suspect]
     Active Substance: METHYLPREDNISOLONE
     Indication: Asthma
  3. CYCLOSPORINE [Concomitant]
     Active Substance: CYCLOSPORINE
     Indication: Dermatitis atopic
  4. METHOTREXATE [Concomitant]
     Active Substance: METHOTREXATE
     Indication: Asthma
  5. METHOTREXATE [Concomitant]
     Active Substance: METHOTREXATE
     Indication: Dermatitis atopic
  6. THEOPHYLLINE [Concomitant]
     Active Substance: THEOPHYLLINE
     Indication: Asthma

REACTIONS (6)
  - Drug ineffective [Unknown]
  - Cataract [Unknown]
  - Injection site abscess [Unknown]
  - Weight increased [Unknown]
  - Infection [Unknown]
  - Skin striae [Unknown]
